FAERS Safety Report 7125013-0 (Version None)
Quarter: 2010Q4

REPORT INFORMATION
  Report Type: 
  Country: None (occurrence: None)
  Receive Date: 20101129
  Receipt Date: 20101125
  Transmission Date: 20110411
  Serious: Yes (Life-Threatening, Other)
  Sender: FDA-Public Use
  Company Number: CH-PFIZER INC-2010157837

PATIENT
  Age: 36 Year
  Sex: Female

DRUGS (1)
  1. CYTOTEC [Suspect]
     Dosage: 25 UG, 2X/DAY
     Route: 067
     Dates: start: 20040823, end: 20040823

REACTIONS (6)
  - ANXIETY [None]
  - HAEMORRHAGE [None]
  - NAUSEA [None]
  - OFF LABEL USE [None]
  - UTERINE RUPTURE [None]
  - VOMITING [None]
